FAERS Safety Report 8238282-0 (Version None)
Quarter: 2012Q1

REPORT INFORMATION
  Report Type: 
  Country: None (occurrence: None)
  Receive Date: 20120327
  Receipt Date: 20120316
  Transmission Date: 20120608
  Serious: Yes (Hospitalization)
  Sender: FDA-Public Use
  Company Number: GR-AMGEN-GRCCT2012017367

PATIENT
  Age: 64 Year
  Sex: Female
  Weight: 72 kg

DRUGS (12)
  1. ARIXTRA [Concomitant]
     Indication: ATRIAL FIBRILLATION
     Dosage: 2.5 MG, BID
     Dates: start: 20110926, end: 20120305
  2. TENORMIN [Concomitant]
     Indication: HYPERTENSION
     Dosage: 50 MG, BID
  3. PANITUMUMAB [Suspect]
     Indication: COLORECTAL CANCER METASTATIC
     Dosage: 9 MG/KG, Q3WK
     Route: 042
     Dates: start: 20110926
  4. ZANTAC [Concomitant]
     Indication: PREMEDICATION
     Dosage: 50 MG, UNK
     Route: 042
     Dates: start: 20110926, end: 20120130
  5. CAPECITABINE [Concomitant]
     Indication: COLORECTAL CANCER METASTATIC
     Dosage: 2000 MG/M2, Q3WK
     Dates: start: 20110926
  6. FENISTIL [Concomitant]
     Indication: PREMEDICATION
     Dosage: 8 MG, UNK
     Route: 042
     Dates: start: 20110926, end: 20120130
  7. DIGOXIN [Concomitant]
     Indication: ATRIAL FIBRILLATION
     Dosage: 0.5 MG, UNK
     Route: 048
  8. COZAAR [Concomitant]
     Indication: HYPERTENSION
     Dosage: 50 MG, UNK
     Route: 048
     Dates: end: 20120217
  9. DEXAMETHASONE [Concomitant]
     Indication: PREMEDICATION
     Dosage: 4 MG, UNK
     Route: 042
     Dates: start: 20110926, end: 20120130
  10. ELOXATIN [Concomitant]
     Indication: COLORECTAL CANCER METASTATIC
     Dosage: 130 MG/M2, Q3WK
     Route: 042
     Dates: start: 20110926
  11. DIAMICRON [Concomitant]
     Indication: HYPERGLYCAEMIA
     Dosage: UNK
     Route: 048
     Dates: start: 20111104, end: 20120217
  12. ZOFRAN [Concomitant]
     Indication: PREMEDICATION
     Dosage: 8 MG, UNK
     Route: 042
     Dates: start: 20110926, end: 20120130

REACTIONS (2)
  - LUNG INFECTION [None]
  - PLATELET DISORDER [None]
